FAERS Safety Report 8917428 (Version 2)
Quarter: 2012Q4

REPORT INFORMATION
  Report Type: 
  Country: US (occurrence: US)
  Receive Date: 20121120
  Receipt Date: 20121207
  Transmission Date: 20130627
  Serious: No
  Sender: FDA-Public Use
  Company Number: US-PFIZER INC-2012285773

PATIENT
  Age: 57 Year
  Sex: Female
  Weight: 55.78 kg

DRUGS (1)
  1. TOVIAZ [Suspect]
     Indication: OVERACTIVE BLADDER
     Dosage: 4 mg, 1x/day
     Route: 048
     Dates: start: 20121104

REACTIONS (3)
  - Headache [Unknown]
  - Middle insomnia [Unknown]
  - Micturition urgency [Unknown]
